FAERS Safety Report 10006352 (Version 1)
Quarter: 2014Q1

REPORT INFORMATION
  Report Type: Spontaneous
  Country: IN (occurrence: IN)
  Receive Date: 20140313
  Receipt Date: 20140313
  Transmission Date: 20141002
  Serious: Yes (Death, Hospitalization, Other)
  Sender: FDA-Public Use
  Company Number: IN-009507513-1403IND003915

PATIENT
  Age: 65 Year
  Sex: Female
  Weight: 50 kg

DRUGS (1)
  1. JANUMET [Suspect]
     Dosage: 1 DF, QD
     Route: 048

REACTIONS (8)
  - Death [Fatal]
  - Fracture [Fatal]
  - Blood glucose increased [Fatal]
  - Fall [Fatal]
  - Surgery [Fatal]
  - Blood pressure increased [Fatal]
  - Blood creatinine decreased [Fatal]
  - Mouth haemorrhage [Fatal]
